FAERS Safety Report 6004460-4 (Version None)
Quarter: 2008Q4

REPORT INFORMATION
  Report Type: 
  Country: None (occurrence: None)
  Receive Date: 20081216
  Receipt Date: 20081209
  Transmission Date: 20090506
  Serious: Yes (Hospitalization)
  Sender: FDA-Public Use
  Company Number: US-ELI_LILLY_AND_COMPANY-US200812002862

PATIENT
  Sex: Female

DRUGS (7)
  1. GEMZAR [Suspect]
     Indication: OVARIAN CANCER RECURRENT
     Dosage: 1000 MG/M2, DAYS 1 AND 15
  2. PLATINUM COMPOUNDS [Concomitant]
     Indication: OVARIAN CANCER RECURRENT
  3. BEVACIZUMAB [Concomitant]
     Indication: OVARIAN CANCER RECURRENT
     Dosage: 10 MG/M2, DAYS 1 AND 15
  4. ONDANSETRON [Concomitant]
     Indication: PROPHYLAXIS OF NAUSEA AND VOMITING
  5. METOCLOPRAMIDE [Concomitant]
     Indication: PROPHYLAXIS OF NAUSEA AND VOMITING
  6. LORAZEPAM [Concomitant]
     Indication: PREMEDICATION
  7. DEXAMETHASONE [Concomitant]
     Indication: PREMEDICATION

REACTIONS (1)
  - MALIGNANT HYPERTENSION [None]
